FAERS Safety Report 7934594-6 (Version None)
Quarter: 2011Q4

REPORT INFORMATION
  Report Type: 
  Country: None (occurrence: None)
  Receive Date: 20111116
  Receipt Date: 20111104
  Transmission Date: 20120403
  Serious: Yes (Hospitalization)
  Sender: FDA-Public Use
  Company Number: 2011SP049682

PATIENT
  Age: 49 Year
  Sex: Male

DRUGS (3)
  1. RIBAVIRIN [Suspect]
     Indication: CHRONIC HEPATITIS
     Dosage: 1000 MG;QD;
     Dates: start: 20110520
  2. VICTRELIS [Suspect]
     Indication: CHRONIC HEPATITIS
     Dosage: 4 DF;TID;PO
     Route: 048
     Dates: start: 20110520
  3. PEG-INTRON [Suspect]
     Indication: CHRONIC HEPATITIS
     Dosage: 135 MG;QW;
     Dates: start: 20110520

REACTIONS (3)
  - EMPYEMA [None]
  - NOCARDIOSIS [None]
  - PNEUMONIA [None]
